FAERS Safety Report 7364370-7 (Version None)
Quarter: 2011Q1

REPORT INFORMATION
  Report Type: 
  Country: None (occurrence: None)
  Receive Date: 20110321
  Receipt Date: 20110208
  Transmission Date: 20110831
  Serious: No
  Sender: FDA-Public Use
  Company Number: US-ALLERGAN-1101891US

PATIENT
  Age: 30 Year
  Sex: Female

DRUGS (2)
  1. ZYMAXID [Suspect]
     Indication: POSTOPERATIVE CARE
     Dosage: 1 GTT, BID
     Route: 047
     Dates: start: 20110128, end: 20110201
  2. RESTASIS [Suspect]
     Indication: POSTOPERATIVE CARE
     Dosage: 1 GTT, BID
     Route: 047
     Dates: start: 20110130, end: 20110201

REACTIONS (1)
  - EYELID INFECTION [None]
